FAERS Safety Report 16067834 (Version 2)
Quarter: 2019Q1

REPORT INFORMATION
  Report Type: Spontaneous
  Country: IT (occurrence: IT)
  Receive Date: 20190313
  Receipt Date: 20190325
  Transmission Date: 20190418
  Serious: Yes (Death, Other)
  Sender: FDA-Public Use
  Company Number: IT-GILEAD-2019-0395930

PATIENT
  Age: 51 Year
  Sex: Male
  Weight: 0 kg

DRUGS (1)
  1. EPCLUSA [Suspect]
     Active Substance: SOFOSBUVIR\VELPATASVIR
     Indication: HEPATIC CIRRHOSIS
     Dosage: 1 DF, QD
     Route: 048
     Dates: start: 20180502, end: 20180701

REACTIONS (2)
  - Nodule [Fatal]
  - Cholangiocarcinoma [Fatal]

NARRATIVE: CASE EVENT DATE: 20180920
